FAERS Safety Report 21725905 (Version 2)
Quarter: 2023Q1

REPORT INFORMATION
  Report Type: Report from Study
  Country: US (occurrence: None)
  Receive Date: 20221214
  Receipt Date: 20230131
  Transmission Date: 20230417
  Serious: Yes (Other)
  Sender: FDA-Public Use
  Company Number: US-Merck Healthcare KGaA-9371033

PATIENT
  Sex: Male

DRUGS (1)
  1. REBIF [Suspect]
     Active Substance: INTERFERON BETA-1A
     Indication: Multiple sclerosis
     Route: 058
     Dates: start: 20190925

REACTIONS (12)
  - Abnormal loss of weight [Unknown]
  - Gastrointestinal polyp [Unknown]
  - Precancerous lesion of digestive tract [Unknown]
  - Gastric hypermotility [Recovering/Resolving]
  - Abdominal wall mass [Unknown]
  - Gastrointestinal motility disorder [Unknown]
  - Nausea [Unknown]
  - Malaise [Recovering/Resolving]
  - Blood pressure increased [Unknown]
  - Heart rate increased [Unknown]
  - Visual impairment [Unknown]
  - Anaemia [Unknown]
